FAERS Safety Report 17228092 (Version 1)
Quarter: 2019Q4

REPORT INFORMATION
  Report Type: Spontaneous
  Country: US (occurrence: US)
  Receive Date: 20191210
  Receipt Date: 20191210
  Transmission Date: 20200122
  Serious: No
  Sender: FDA-Public Use
  Company Number: None

PATIENT
  Sex: Male

DRUGS (1)
  1. FORTEO [Suspect]
     Active Substance: TERIPARATIDE
     Indication: OSTEOPOROSIS
     Route: 058
     Dates: start: 20191106, end: 201911

REACTIONS (9)
  - Confusional state [None]
  - Headache [None]
  - Dermatitis allergic [None]
  - Dry skin [None]
  - Arthralgia [None]
  - Ear discomfort [None]
  - Somnolence [None]
  - Therapy cessation [None]
  - Hyperaesthesia teeth [None]
